FAERS Safety Report 12132928 (Version 1)
Quarter: 2016Q1

REPORT INFORMATION
  Report Type: Spontaneous
  Country: US (occurrence: US)
  Receive Date: 20160301
  Receipt Date: 20160301
  Transmission Date: 20160526
  Serious: No
  Sender: FDA-Public Use
  Company Number: US-JNJFOC-20160215248

PATIENT
  Sex: Female
  Weight: 77.11 kg

DRUGS (1)
  1. LEVAQUIN [Suspect]
     Active Substance: LEVOFLOXACIN
     Indication: SEPSIS
     Dosage: ADMINISTERED IN THE HOSPITAL AROUND 10 YEARS AGO.
     Route: 042

REACTIONS (2)
  - Hypertension [Unknown]
  - Abdominal discomfort [Unknown]
